FAERS Safety Report 25244883 (Version 2)
Quarter: 2025Q2

REPORT INFORMATION
  Report Type: Spontaneous
  Country: CA (occurrence: CA)
  Receive Date: 20250428
  Receipt Date: 20250429
  Transmission Date: 20250717
  Serious: Yes (Other)
  Sender: PFIZER
  Company Number: CA-PFIZER INC-202500086844

PATIENT
  Age: 1 Decade
  Sex: Female

DRUGS (2)
  1. SIROLIMUS [Suspect]
     Active Substance: SIROLIMUS
     Dates: start: 2022
  2. ENALAPRIL [Suspect]
     Active Substance: ENALAPRIL
     Dates: start: 2022

REACTIONS (1)
  - Blister [Unknown]
